FAERS Safety Report 7497132-0 (Version None)
Quarter: 2011Q2

REPORT INFORMATION
  Report Type: 
  Country: None (occurrence: None)
  Receive Date: 20110523
  Receipt Date: 20110518
  Transmission Date: 20111010
  Serious: Yes (Hospitalization)
  Sender: FDA-Public Use
  Company Number: CA-ABBOTT-11P-028-0727018-00

PATIENT
  Sex: Male
  Weight: 90.8 kg

DRUGS (2)
  1. HUMIRA [Suspect]
     Indication: CROHN'S DISEASE
     Route: 058
     Dates: start: 20091011, end: 20091201
  2. HUMIRA [Suspect]
     Dosage: 160 MG LOADING DOSE
     Route: 058
     Dates: start: 20110511

REACTIONS (5)
  - LARGE INTESTINAL ULCER [None]
  - INJECTION SITE IRRITATION [None]
  - ULCER [None]
  - INJECTION SITE ERYTHEMA [None]
  - CROHN'S DISEASE [None]
